FAERS Safety Report 18066849 (Version 5)
Quarter: 2025Q3

REPORT INFORMATION
  Report Type: Report from Study
  Country: US (occurrence: US)
  Receive Date: 20200724
  Receipt Date: 20250805
  Transmission Date: 20251020
  Serious: Yes (Hospitalization, Other)
  Sender: TAKEDA
  Company Number: US-SHIRE-US202023376

PATIENT
  Age: 6 Year
  Sex: Male

DRUGS (4)
  1. IDURSULFASE [Suspect]
     Active Substance: IDURSULFASE
     Indication: Mucopolysaccharidosis II
     Dosage: 4 DOSAGE FORM, 1/WEEK
     Dates: start: 20160219
  2. IDURSULFASE [Suspect]
     Active Substance: IDURSULFASE
     Dosage: 5 DOSAGE FORM, 1/WEEK
  3. IDURSULFASE [Suspect]
     Active Substance: IDURSULFASE
     Dosage: UNK, 1/WEEK
  4. IDURSULFASE [Suspect]
     Active Substance: IDURSULFASE

REACTIONS (10)
  - Nephrolithiasis [Recovered/Resolved]
  - Localised infection [Unknown]
  - Limb injury [Unknown]
  - Behaviour disorder [Unknown]
  - Urinary tract infection [Recovered/Resolved]
  - Urethral disorder [Recovering/Resolving]
  - Weight decreased [Unknown]
  - Product use issue [Unknown]
  - Insurance issue [Unknown]
  - Anxiety [Unknown]

NARRATIVE: CASE EVENT DATE: 20211115
